FAERS Safety Report 25304707 (Version 4)
Quarter: 2025Q2

REPORT INFORMATION
  Report Type: Spontaneous
  Country: US (occurrence: US)
  Receive Date: 20250513
  Receipt Date: 20250626
  Transmission Date: 20250717
  Serious: No
  Sender: PFIZER
  Company Number: US-PFIZER INC-202500095740

PATIENT
  Age: 6 Year
  Sex: Male
  Weight: 35.83 kg

DRUGS (2)
  1. GENOTROPIN [Suspect]
     Active Substance: SOMATROPIN
     Indication: Prader-Willi syndrome
     Dosage: 0.8 (UNIT UNKNOWN), 1X/DAY
     Dates: start: 2024
  2. QUINIDINE [Concomitant]
     Active Substance: QUINIDINE
     Indication: Behaviour disorder
     Dosage: UNK UNK, 1X/DAY (EVERY NIGHT BEFORE BED)

REACTIONS (4)
  - Drug dose omission by device [Unknown]
  - Device difficult to use [Unknown]
  - Device issue [Unknown]
  - Device delivery system issue [Unknown]
